FAERS Safety Report 16850897 (Version 1)
Quarter: 2019Q3

REPORT INFORMATION
  Report Type: Spontaneous
  Country: US (occurrence: US)
  Receive Date: 20190925
  Receipt Date: 20190925
  Transmission Date: 20191005
  Serious: No
  Sender: FDA-Public Use
  Company Number: US-THERAPEUTICSMD-2019TMD01607

PATIENT
  Sex: Female
  Weight: 56.69 kg

DRUGS (7)
  1. IMVEXXY [Suspect]
     Active Substance: ESTRADIOL
     Indication: VULVOVAGINAL DRYNESS
     Dosage: 10 ?G, 2X/WEEK BEFORE BED
     Route: 067
     Dates: start: 201904, end: 20190617
  2. LIPITOR [Concomitant]
     Active Substance: ATORVASTATIN CALCIUM
     Dosage: 10 MG, 1X/DAY
  3. CITRACAL WITH D3 [Concomitant]
     Dosage: UNK UNK, 1X/DAY
  4. ALLEGRA [Concomitant]
     Active Substance: FEXOFENADINE HYDROCHLORIDE
  5. PANTOPRAZOLE [Concomitant]
     Active Substance: PANTOPRAZOLE
     Dosage: 40 MG, AS NEEDED
  6. MELATONIN GUMMY [Concomitant]
     Dosage: 3 MG, 1X/DAY
  7. NASACORT [Concomitant]
     Active Substance: TRIAMCINOLONE ACETONIDE

REACTIONS (11)
  - Vulvovaginal pruritus [Recovered/Resolved]
  - Headache [Recovered/Resolved]
  - Product substitution issue [Recovered/Resolved]
  - Abdominal discomfort [Recovered/Resolved]
  - Musculoskeletal pain [Recovering/Resolving]
  - Night sweats [Recovered/Resolved]
  - Nausea [Recovered/Resolved]
  - Vulvovaginal burning sensation [Recovered/Resolved]
  - Product administration error [Recovered/Resolved]
  - Product residue present [Recovered/Resolved]
  - Off label use [Recovered/Resolved]

NARRATIVE: CASE EVENT DATE: 2019
